FAERS Safety Report 21323898 (Version 1)
Quarter: 2022Q3

REPORT INFORMATION
  Report Type: Spontaneous
  Country: US (occurrence: None)
  Receive Date: 20220912
  Receipt Date: 20220912
  Transmission Date: 20221027
  Serious: No
  Sender: FDA-Public Use
  Company Number: None

PATIENT
  Sex: Female

DRUGS (1)
  1. HUMIRA [Suspect]
     Active Substance: ADALIMUMAB
     Indication: Skin lesion
     Dosage: 40 MG EVERY 2 WEEKS  SUBCUTANEOUSLY
     Route: 058

REACTIONS (2)
  - Therapeutic product effect decreased [None]
  - Unevaluable event [None]
